FAERS Safety Report 13833963 (Version 1)
Quarter: 2017Q3

REPORT INFORMATION
  Report Type: Spontaneous
  Country: US (occurrence: US)
  Receive Date: 20170804
  Receipt Date: 20170804
  Transmission Date: 20171127
  Serious: Yes (Death)
  Sender: FDA-Public Use
  Company Number: US-NEUROCRINE BIOSCIENCES INC.-2017NBI00519

PATIENT
  Age: 53 Year
  Sex: Male
  Weight: 72.19 kg

DRUGS (7)
  1. LEXAPRO [Concomitant]
     Active Substance: ESCITALOPRAM OXALATE
  2. FINASTERIDE. [Concomitant]
     Active Substance: FINASTERIDE
  3. BENZTROPINE [Concomitant]
     Active Substance: BENZTROPINE
  4. INGREZZA [Suspect]
     Active Substance: VALBENAZINE
     Indication: TARDIVE DYSKINESIA
     Dosage: EVERY OTHER DAY FOR 2 WEEKS
     Dates: start: 20170601
  5. INGREZZA [Suspect]
     Active Substance: VALBENAZINE
     Dates: start: 201706
  6. ADVAIR HFA [Concomitant]
     Active Substance: FLUTICASONE PROPIONATE\SALMETEROL XINAFOATE
  7. PROAIR HFA [Concomitant]
     Active Substance: ALBUTEROL SULFATE

REACTIONS (2)
  - Death [Fatal]
  - Off label use [Recovered/Resolved]

NARRATIVE: CASE EVENT DATE: 201706
